FAERS Safety Report 6553986-3 (Version None)
Quarter: 2010Q1

REPORT INFORMATION
  Report Type: 
  Country: None (occurrence: None)
  Receive Date: 20100127
  Receipt Date: 20100105
  Transmission Date: 20100710
  Serious: No
  Sender: FDA-Public Use
  Company Number: US-JNJFOC-20100101556

PATIENT
  Age: 26 Year
  Sex: Female

DRUGS (3)
  1. INVEGA [Suspect]
     Indication: SCHIZOPHRENIA
     Route: 048
  2. PROLIXIN [Concomitant]
     Indication: DRUG USE FOR UNKNOWN INDICATION
     Route: 048
  3. AMANTADINE HCL [Concomitant]
     Indication: MUSCULOSKELETAL STIFFNESS
     Route: 048

REACTIONS (1)
  - HALLUCINATION, AUDITORY [None]
